FAERS Safety Report 15432852 (Version 2)
Quarter: 2018Q4

REPORT INFORMATION
  Report Type: Spontaneous
  Country: US (occurrence: US)
  Receive Date: 20180927
  Receipt Date: 20181123
  Transmission Date: 20190204
  Serious: No
  Sender: FDA-Public Use
  Company Number: US-ASTRAZENECA-2018SF11239

PATIENT
  Sex: Female

DRUGS (2)
  1. SYMBICORT [Suspect]
     Active Substance: BUDESONIDE\FORMOTEROL FUMARATE DIHYDRATE
     Indication: ASTHMA
     Dosage: 160-4.5MCG 2 TO 4 TIMES A DAY, 2 PUFFS EACH TIME UNKNOWN
     Route: 055
     Dates: start: 20180828
  2. SYMBICORT [Suspect]
     Active Substance: BUDESONIDE\FORMOTEROL FUMARATE DIHYDRATE
     Indication: ASTHMA
     Dosage: 160-4.5MCG UNKNOWN UNKNOWN
     Route: 055
     Dates: start: 2018

REACTIONS (6)
  - Device malfunction [Not Recovered/Not Resolved]
  - Malaise [Unknown]
  - Intentional device misuse [Unknown]
  - Off label use [Not Recovered/Not Resolved]
  - Hypersensitivity [Unknown]
  - Product use issue [Not Recovered/Not Resolved]
